FAERS Safety Report 4663565-0 (Version None)
Quarter: 2005Q2

REPORT INFORMATION
  Report Type: 
  Country: None (occurrence: None)
  Receive Date: 20050517
  Receipt Date: 20050504
  Transmission Date: 20051028
  Serious: Yes (Hospitalization)
  Sender: FDA-Public Use
  Company Number: HQWYE769706DEC04

PATIENT
  Age: 32 Year
  Sex: Female

DRUGS (1)
  1. ENBREL [Suspect]
     Indication: ABORTION THREATENED
     Route: 058
     Dates: start: 20040101, end: 20040101

REACTIONS (5)
  - CAESAREAN SECTION [None]
  - DRUG EXPOSURE DURING PREGNANCY [None]
  - OFF LABEL USE [None]
  - PREMATURE BABY [None]
  - PREMATURE LABOUR [None]
